FAERS Safety Report 4639108-4 (Version None)
Quarter: 2005Q2

REPORT INFORMATION
  Report Type: 
  Country: None (occurrence: None)
  Receive Date: 20050419
  Receipt Date: 20050406
  Transmission Date: 20051028
  Serious: Yes (Hospitalization)
  Sender: FDA-Public Use
  Company Number: ES-NOVOPROD-243401

PATIENT
  Age: 72 Year
  Sex: Female
  Weight: 58 kg

DRUGS (4)
  1. NOVONORM [Suspect]
     Indication: DIABETES MELLITUS
     Dosage: 1 TAB, QD
     Route: 048
     Dates: start: 20050121, end: 20050210
  2. DEPAKENE [Suspect]
     Dosage: 1.2 G, QD
     Route: 048
     Dates: start: 20050120, end: 20050210
  3. SEROXAT ^SMITHKLINE BEECHAM^ [Suspect]
     Dosage: 20 MG, QD
     Route: 048
     Dates: start: 20050128, end: 20050210
  4. ZYPREXA [Suspect]
     Dosage: .05 MG, QD
     Route: 048
     Dates: start: 20050202, end: 20050210

REACTIONS (1)
  - HEPATITIS [None]
